FAERS Safety Report 17393629 (Version 2)
Quarter: 2021Q1

REPORT INFORMATION
  Report Type: Report from Study
  Country: CO (occurrence: CO)
  Receive Date: 20200208
  Receipt Date: 20210325
  Transmission Date: 20210419
  Serious: Yes (Other)
  Sender: FDA-Public Use
  Company Number: PHHY2018CO201228

PATIENT
  Age: 62 Year
  Sex: Male
  Weight: 68 kg

DRUGS (4)
  1. SANDOSTATIN LAR DEPOT [Suspect]
     Active Substance: OCTREOTIDE ACETATE
     Dosage: 30 MG, QMO
     Route: 030
     Dates: start: 20180812, end: 201912
  2. AFINITOR [Suspect]
     Active Substance: EVEROLIMUS
     Indication: NEUROENDOCRINE TUMOUR
     Dosage: UNK, QD
     Route: 048
     Dates: start: 201710, end: 201912
  3. SANDOSTATIN LAR DEPOT [Suspect]
     Active Substance: OCTREOTIDE ACETATE
  4. SANDOSTATIN LAR DEPOT [Suspect]
     Active Substance: OCTREOTIDE ACETATE
     Indication: NEUROENDOCRINE TUMOUR
     Dosage: UNK, QMO
     Route: 030
     Dates: start: 201710

REACTIONS (7)
  - Diarrhoea [Unknown]
  - Metastases to liver [Unknown]
  - Malaise [Unknown]
  - Abdominal injury [Unknown]
  - Gastric mucosal lesion [Unknown]
  - Colon cancer metastatic [Unknown]
  - Metastases to lung [Unknown]

NARRATIVE: CASE EVENT DATE: 201902
